FAERS Safety Report 10234155 (Version 1)
Quarter: 2014Q2

REPORT INFORMATION
  Report Type: Spontaneous
  Country: FR (occurrence: FR)
  Receive Date: 20140612
  Receipt Date: 20140612
  Transmission Date: 20141212
  Serious: Yes (Hospitalization)
  Sender: FDA-Public Use
  Company Number: FR-GLAXOSMITHKLINE-B1000669A

PATIENT
  Age: 63 Year
  Sex: Male
  Weight: 88 kg

DRUGS (8)
  1. AVODART [Suspect]
     Indication: PRODUCT USED FOR UNKNOWN INDICATION
     Dosage: 1UNIT PER DAY
     Route: 048
     Dates: start: 201401
  2. TAMSULOSINE [Suspect]
     Indication: PRODUCT USED FOR UNKNOWN INDICATION
     Dosage: .4MG PER DAY
     Route: 048
     Dates: start: 201401
  3. HYPERIUM [Suspect]
     Indication: PRODUCT USED FOR UNKNOWN INDICATION
     Dosage: 1MG PER DAY
     Route: 048
     Dates: start: 20140402
  4. VEMURAFENIB [Suspect]
     Indication: METASTATIC MALIGNANT MELANOMA
     Dosage: 2TAB TWICE PER DAY
     Route: 048
     Dates: start: 20140402
  5. CO APROVEL [Concomitant]
     Indication: PRODUCT USED FOR UNKNOWN INDICATION
     Route: 065
     Dates: end: 20140402
  6. ZYLORIC [Concomitant]
     Indication: PRODUCT USED FOR UNKNOWN INDICATION
     Dosage: 100MG TWICE PER DAY
     Route: 065
  7. DIFFU K [Concomitant]
     Indication: PRODUCT USED FOR UNKNOWN INDICATION
     Route: 065
  8. CORTANCYL [Concomitant]
     Indication: PRODUCT USED FOR UNKNOWN INDICATION
     Dosage: 60MG PER DAY
     Route: 065

REACTIONS (1)
  - Pollakiuria [Unknown]
